FAERS Safety Report 5350746-6 (Version None)
Quarter: 2007Q2

REPORT INFORMATION
  Report Type: 
  Country: None (occurrence: None)
  Receive Date: 20070606
  Receipt Date: 20070606
  Transmission Date: 20071010
  Serious: Yes (Other)
  Sender: FDA-Public Use
  Company Number: None

PATIENT
  Sex: Female
  Weight: 96 kg

DRUGS (3)
  1. FLUDARABINE PHOSPHATE [Suspect]
     Indication: ACUTE MYELOID LEUKAEMIA
     Dosage: 60MG DAILY X 5 IV
     Route: 042
     Dates: start: 20040404, end: 20070408
  2. MELPHLAN [Suspect]
     Dosage: 280MG TIMES ONE IV
     Route: 042
     Dates: start: 20070409, end: 20070409
  3. CAMPATH [Concomitant]

REACTIONS (5)
  - BLOOD CREATININE INCREASED [None]
  - DYSPNOEA [None]
  - FLUID OVERLOAD [None]
  - HALLUCINATION [None]
  - RENAL FAILURE ACUTE [None]
